FAERS Safety Report 8069860-X (Version None)
Quarter: 2012Q1

REPORT INFORMATION
  Report Type: 
  Country: None (occurrence: None)
  Receive Date: 20120125
  Receipt Date: 20120119
  Transmission Date: 20120608
  Serious: Yes (Hospitalization)
  Sender: FDA-Public Use
  Company Number: GB-PFIZER INC-2012016350

PATIENT
  Age: 71 Year

DRUGS (6)
  1. LEFLUNOMIDE [Suspect]
     Dosage: 20 MG, 1X/DAY
     Route: 048
     Dates: end: 20120101
  2. PREDNISOLONE [Concomitant]
     Dosage: 10 MG, 1X/DAY
     Route: 048
  3. DIGOXIN [Concomitant]
     Dosage: 125 UG, 1X/DAY
     Route: 048
  4. VARENICLINE TARTRATE [Suspect]
     Dosage: UNK
     Dates: start: 20120106, end: 20120101
  5. WARFARIN [Concomitant]
     Dosage: UNK
     Dates: end: 20120101
  6. FERROUS SULFATE TAB [Concomitant]
     Dosage: 200 MG, 2X/DAY
     Route: 048

REACTIONS (3)
  - JAUNDICE [None]
  - INTERNATIONAL NORMALISED RATIO INCREASED [None]
  - HEPATOTOXICITY [None]
